FAERS Safety Report 13717023 (Version 1)
Quarter: 2017Q3

REPORT INFORMATION
  Report Type: Spontaneous
  Country: US (occurrence: US)
  Receive Date: 20170704
  Receipt Date: 20170704
  Transmission Date: 20171127
  Serious: Yes (Life-Threatening, Hospitalization, Other)
  Sender: FDA-Public Use
  Company Number: None

PATIENT
  Age: 57 Year
  Sex: Female
  Weight: 50.4 kg

DRUGS (6)
  1. BIOTIN [Concomitant]
     Active Substance: BIOTIN
  2. VITAMIN C [Concomitant]
     Active Substance: ASCORBIC ACID
  3. VITAMIN B12 [Concomitant]
     Active Substance: CYANOCOBALAMIN
  4. HAIR, SKIN AND NAILS [Concomitant]
  5. PRENATAL VITAMINS [Concomitant]
     Active Substance: VITAMINS
  6. APRISO [Suspect]
     Active Substance: MESALAMINE
     Indication: COLITIS ULCERATIVE
     Route: 048
     Dates: start: 20151001, end: 20151012

REACTIONS (8)
  - Headache [None]
  - Large intestine perforation [None]
  - Nausea [None]
  - Rectal haemorrhage [None]
  - Weight decreased [None]
  - Abdominal pain upper [None]
  - Muscle spasms [None]
  - Malaise [None]

NARRATIVE: CASE EVENT DATE: 20151001
